FAERS Safety Report 17188486 (Version 2)
Quarter: 2020Q3

REPORT INFORMATION
  Report Type: Spontaneous
  Country: DE (occurrence: DE)
  Receive Date: 20191222
  Receipt Date: 20200215
  Transmission Date: 20201105
  Serious: Yes (Hospitalization)
  Sender: FDA-Public Use
  Company Number: DE-TEVA-2019-DE-1157597

PATIENT
  Age: 64 Year
  Sex: Female
  Weight: 44 kg

DRUGS (7)
  1. PALBOCICLIB CAPSULE [Concomitant]
     Active Substance: PALBOCICLIB
     Dosage: 1X/DAY DAYS 1?21 EVERY (Q) 28 DAYS
     Route: 048
     Dates: start: 20191017
  2. ANASTRAZOL [Concomitant]
     Active Substance: ANASTROZOLE
     Dosage: 1 MILLIGRAM DAILY;
     Route: 065
     Dates: start: 20190919
  3. IBANDRONIC ACID. [Suspect]
     Active Substance: IBANDRONIC ACID
     Dosage: 6 MG, Q 28 DAYS
     Dates: start: 20191017
  4. BISOPROLOL [Concomitant]
     Active Substance: BISOPROLOL
     Indication: HYPERTENSION
     Route: 065
  5. TORASEMID [Concomitant]
     Active Substance: TORSEMIDE
     Indication: HYPERTENSION
     Route: 065
  6. ASPIRIN. [Concomitant]
     Active Substance: ASPIRIN
     Indication: CORONARY ARTERY DISEASE
     Route: 065
     Dates: start: 201503
  7. RAMIPRIL. [Concomitant]
     Active Substance: RAMIPRIL
     Indication: HYPERTENSION
     Route: 065

REACTIONS (1)
  - Jaw fracture [Recovering/Resolving]

NARRATIVE: CASE EVENT DATE: 20191210
